FAERS Safety Report 9576551 (Version 1)
Quarter: 2013Q4

REPORT INFORMATION
  Report Type: Spontaneous
  Country: US (occurrence: US)
  Receive Date: 20131001
  Receipt Date: 20131001
  Transmission Date: 20140711
  Serious: No
  Sender: FDA-Public Use
  Company Number: US-AMGEN-USASP2013003720

PATIENT
  Sex: Male
  Weight: 97.51 kg

DRUGS (2)
  1. ENBREL [Suspect]
     Indication: PSORIATIC ARTHROPATHY
     Dosage: 50 MG, QWK
     Route: 058
  2. ONE-A-DAY MEN^S [Concomitant]
     Dosage: UNK

REACTIONS (1)
  - Influenza [Recovered/Resolved]
